FAERS Safety Report 20148645 (Version 2)
Quarter: 2021Q4

REPORT INFORMATION
  Report Type: Spontaneous
  Country: US (occurrence: US)
  Receive Date: 20211204
  Receipt Date: 20211218
  Transmission Date: 20220303
  Serious: Yes (Death, Hospitalization)
  Sender: FDA-Public Use
  Company Number: US-NOVARTISPH-NVSC2021US277450

PATIENT
  Sex: Male
  Weight: 91.6 kg

DRUGS (2)
  1. HYCAMTIN [Suspect]
     Active Substance: TOPOTECAN HYDROCHLORIDE
     Indication: Lung neoplasm malignant
     Dosage: 5 MG, QD
     Route: 048
     Dates: start: 20211113
  2. HYCAMTIN [Suspect]
     Active Substance: TOPOTECAN HYDROCHLORIDE
     Indication: Small cell lung cancer metastatic
     Dosage: 5 MG
     Route: 048
     Dates: start: 20211115, end: 20211119

REACTIONS (3)
  - Small cell lung cancer [Fatal]
  - Febrile neutropenia [Fatal]
  - Pain [Unknown]
